FAERS Safety Report 6412265-5 (Version None)
Quarter: 2009Q4

REPORT INFORMATION
  Report Type: 
  Country: None (occurrence: None)
  Receive Date: 20091023
  Receipt Date: 20091013
  Transmission Date: 20100525
  Serious: Yes (Death, Other)
  Sender: FDA-Public Use
  Company Number: JP-PFIZER INC-2009274332

PATIENT
  Age: 68 Year

DRUGS (14)
  1. CAMPTOSAR [Suspect]
     Indication: COLON CANCER
     Dosage: 76.1 MG/M2 (140 MG/BODY)
     Route: 041
     Dates: start: 20090519, end: 20090904
  2. AVASTIN [Suspect]
     Indication: COLON CANCER
     Dosage: 515 MG
     Route: 041
     Dates: start: 20090519, end: 20090904
  3. TS-1 [Suspect]
     Indication: COLON CANCER
     Dosage: 60 MG, 2X/DAY (120 MG)
     Route: 048
     Dates: start: 20090519, end: 20090820
  4. TS-1 [Suspect]
     Dosage: 50 MG, 2X/DAY (100 MG)
     Dates: start: 20090904, end: 20090909
  5. GRANISETRON [Concomitant]
     Indication: PREMEDICATION
     Dosage: 3 MG
     Route: 041
     Dates: start: 20090519, end: 20090904
  6. DEXAMETHASONE SODIUM PHOSPHATE [Concomitant]
     Indication: PREMEDICATION
     Dosage: 8 MG
     Route: 041
     Dates: start: 20090519, end: 20090904
  7. ASPIRIN DIALUMINATE [Concomitant]
     Dosage: 81 MG
     Route: 048
     Dates: end: 20090903
  8. ARTIST [Concomitant]
     Dosage: 5 MG
     Route: 048
     Dates: end: 20090910
  9. ITOROL [Concomitant]
     Dosage: 20 MG, 2X/DAY
     Route: 048
     Dates: end: 20090910
  10. GLIMICRON [Concomitant]
     Dosage: 40 MG, 2X/DAY
     Route: 048
     Dates: end: 20090910
  11. MAGNESIUM OXIDE [Concomitant]
     Indication: CONSTIPATION PROPHYLAXIS
     Dosage: 0.5 G, 2X/DAY
     Dates: end: 20090910
  12. LIPITOR [Concomitant]
     Dosage: 5 MG
     Route: 048
     Dates: end: 20090910
  13. LOXONIN [Concomitant]
     Indication: PAIN PROPHYLAXIS
     Dosage: UNK
     Route: 048
     Dates: start: 20090821, end: 20090910
  14. MUCOSTA [Concomitant]
     Indication: PROPHYLAXIS AGAINST GASTROINTESTINAL ULCER
     Dosage: UNK
     Route: 048
     Dates: start: 20090821, end: 20090910

REACTIONS (8)
  - DECREASED APPETITE [None]
  - DIARRHOEA [None]
  - FEBRILE NEUTROPENIA [None]
  - MALAISE [None]
  - NAUSEA [None]
  - PSEUDOMEMBRANOUS COLITIS [None]
  - STOMATITIS [None]
  - VOMITING [None]
